FAERS Safety Report 12447667 (Version 1)
Quarter: 2016Q2

REPORT INFORMATION
  Report Type: Spontaneous
  Country: US (occurrence: None)
  Receive Date: 20160607
  Receipt Date: 20160607
  Transmission Date: 20160815
  Serious: Yes (Hospitalization)
  Sender: FDA-Public Use
  Company Number: None

PATIENT
  Sex: Male
  Weight: 66.7 kg

DRUGS (26)
  1. MINOCYCLINE [Concomitant]
     Active Substance: MINOCYCLINE\MINOCYCLINE HYDROCHLORIDE
  2. PREDNISONE. [Concomitant]
     Active Substance: PREDNISONE
  3. FAMOTIDINE. [Concomitant]
     Active Substance: FAMOTIDINE
  4. PROCHLORPERAZINE MALEATE. [Concomitant]
     Active Substance: PROCHLORPERAZINE MALEATE
  5. PONARIS NASAL SOLUTION [Concomitant]
  6. PALBOCICLIB [Suspect]
     Active Substance: PALBOCICLIB
     Indication: METASTATIC SQUAMOUS CELL CARCINOMA
     Dosage: 125MG DAYS 1-21 PO
     Route: 048
     Dates: start: 20160114, end: 20160601
  7. CETUXIMAB [Suspect]
     Active Substance: CETUXIMAB
     Indication: METASTATIC SQUAMOUS CELL CARCINOMA
     Route: 042
     Dates: start: 20160114, end: 20160526
  8. BUPROPION. [Concomitant]
     Active Substance: BUPROPION
  9. FOSAMAX [Concomitant]
     Active Substance: ALENDRONATE SODIUM
  10. LIDOCAINE. [Concomitant]
     Active Substance: LIDOCAINE
  11. TWOCAL HN ORAL LIQUID [Concomitant]
  12. VITAMIN B COMPLEX [Concomitant]
     Active Substance: CYANOCOBALAMIN\DEXPANTHENOL\NIACINAMIDE\PYRIDOXINE HYDROCHLORIDE\RIBOFLAVIN 5^-PHOSPHATE SODIUM\THIAMINE HYDROCHLORIDE\VITAMIN B COMPLEX
  13. GABAPENTIN. [Concomitant]
     Active Substance: GABAPENTIN
  14. CALCIUM [Concomitant]
     Active Substance: CALCIUM
  15. CEVIMELINE. [Concomitant]
     Active Substance: CEVIMELINE
  16. LYRICA [Concomitant]
     Active Substance: PREGABALIN
  17. SULFAMETHOXAZOLE-TRIMETHOPRIM [Concomitant]
     Active Substance: SULFAMETHOXAZOLE\TRIMETHOPRIM
  18. ZOLPIDEM TARTRATE. [Concomitant]
     Active Substance: ZOLPIDEM TARTRATE
  19. FENTANYL. [Concomitant]
     Active Substance: FENTANYL
  20. FISH OIL [Concomitant]
     Active Substance: FISH OIL
  21. ACETAMINOPHEN\HYDROCODONE BITARTRATE [Concomitant]
     Active Substance: ACETAMINOPHEN\HYDROCODONE BITARTRATE
  22. TAMSULOSIN [Concomitant]
     Active Substance: TAMSULOSIN
  23. OXYCODONE [Concomitant]
     Active Substance: OXYCODONE
  24. GRANISETRON [Concomitant]
     Active Substance: GRANISETRON
  25. SODIUM CHLORIDE. [Concomitant]
     Active Substance: SODIUM CHLORIDE
  26. FLUTICASONE PROPIONATE. [Concomitant]
     Active Substance: FLUTICASONE PROPIONATE

REACTIONS (4)
  - Refusal of treatment by patient [None]
  - Pulmonary arterial hypertension [None]
  - Dyspnoea [None]
  - Bronchial obstruction [None]

NARRATIVE: CASE EVENT DATE: 20160601
